FAERS Safety Report 9846256 (Version 2)
Quarter: 2014Q1

REPORT INFORMATION
  Report Type: Spontaneous
  Country: US (occurrence: US)
  Receive Date: 20140127
  Receipt Date: 20140127
  Transmission Date: 20141002
  Serious: Yes (Other)
  Sender: FDA-Public Use
  Company Number: PHEH2013US025969

PATIENT
  Sex: Female

DRUGS (6)
  1. DIOVAN HCT [Suspect]
     Dosage: 1 DF, (VALS 320 MG / HYDR 25 MG )
     Route: 048
  2. DIOVAN HCT [Suspect]
     Dosage: 1 DF, (VALS 160 MG / HYDR 12.5 MG )
  3. DIOVAN [Suspect]
     Dosage: UNK UKN, UNK
  4. DIOVAN [Suspect]
     Dosage: 320 MG, UNK
  5. DIOVAN [Suspect]
     Dosage: 160 MG, UNK
  6. LEVOTHYROXINE [Concomitant]

REACTIONS (3)
  - Weight decreased [Unknown]
  - Chest discomfort [Unknown]
  - Drug intolerance [Unknown]
